FAERS Safety Report 17510306 (Version 1)
Quarter: 2020Q1

REPORT INFORMATION
  Report Type: Spontaneous
  Country: US (occurrence: US)
  Receive Date: 20200306
  Receipt Date: 20200306
  Transmission Date: 20200409
  Serious: Yes (Hospitalization, Other)
  Sender: FDA-Public Use
  Company Number: US-HIKMA PHARMACEUTICALS USA INC.-US-H14001-20-50751

PATIENT
  Age: 18 Year
  Sex: Female

DRUGS (8)
  1. FLUOXETINE [Interacting]
     Active Substance: FLUOXETINE HYDROCHLORIDE
     Indication: DEPRESSIVE SYMPTOM
     Dosage: EVERY MORNING
     Route: 065
  2. LISDEXAMFETAMINE [Interacting]
     Active Substance: LISDEXAMFETAMINE
     Indication: GENERALISED ANXIETY DISORDER
     Dosage: EVERY MORNING
     Route: 065
  3. LISDEXAMFETAMINE [Interacting]
     Active Substance: LISDEXAMFETAMINE
     Indication: ATTENTION DEFICIT/HYPERACTIVITY DISORDER
  4. QUETIAPINE. [Suspect]
     Active Substance: QUETIAPINE
     Indication: GENERALISED ANXIETY DISORDER
     Dosage: AT BEDTIME
     Route: 065
  5. FLUOXETINE [Interacting]
     Active Substance: FLUOXETINE HYDROCHLORIDE
     Indication: DEPRESSIVE SYMPTOM
     Dosage: EVERY MORNING
     Route: 065
  6. FLUOXETINE [Interacting]
     Active Substance: FLUOXETINE HYDROCHLORIDE
     Indication: DEPRESSIVE SYMPTOM
     Dosage: EVERY MORNING
     Route: 065
  7. QUETIAPINE. [Interacting]
     Active Substance: QUETIAPINE
     Indication: ATTENTION DEFICIT/HYPERACTIVITY DISORDER
  8. FLUOXETINE [Interacting]
     Active Substance: FLUOXETINE HYDROCHLORIDE
     Indication: GENERALISED ANXIETY DISORDER
     Dosage: EVERY MORNING
     Route: 065

REACTIONS (4)
  - Myalgia [Recovering/Resolving]
  - Tremor [Recovering/Resolving]
  - Serotonin syndrome [Recovering/Resolving]
  - Drug interaction [Recovering/Resolving]
